FAERS Safety Report 5151059-8 (Version None)
Quarter: 2006Q4

REPORT INFORMATION
  Report Type: 
  Country: None (occurrence: None)
  Receive Date: 20061115
  Receipt Date: 20040408
  Transmission Date: 20070319
  Serious: Yes (Hospitalization)
  Sender: FDA-Public Use
  Company Number: FR-ABBOTT-04P-056-0256857-00

PATIENT
  Sex: Female

DRUGS (7)
  1. HUMIRA [Suspect]
     Indication: RHEUMATOID ARTHRITIS
     Route: 058
     Dates: start: 20030201, end: 20040120
  2. HUMIRA [Suspect]
     Route: 058
     Dates: start: 20040322
  3. CLAVULIN [Concomitant]
     Indication: OSTEITIS
     Dates: start: 20040119
  4. CLAVULIN [Concomitant]
  5. GENTAMICIN [Concomitant]
     Indication: OSTEITIS
  6. PRISTINAMYCIN [Concomitant]
     Indication: OSTEITIS
  7. OFLOXACIN [Concomitant]
     Indication: OSTEITIS

REACTIONS (1)
  - OSTEITIS [None]
